FAERS Safety Report 10421139 (Version 1)
Quarter: 2014Q3

REPORT INFORMATION
  Report Type: Spontaneous
  Country: GB (occurrence: GB)
  Receive Date: 20140830
  Receipt Date: 20140830
  Transmission Date: 20150326
  Serious: Yes (Other)
  Sender: FDA-Public Use
  Company Number: GB-ABBVIE-14K-167-1276253-00

PATIENT
  Age: 39 Year
  Sex: Male

DRUGS (1)
  1. HUMIRA [Suspect]
     Active Substance: ADALIMUMAB
     Indication: PRODUCT USED FOR UNKNOWN INDICATION

REACTIONS (4)
  - Ocular hyperaemia [Unknown]
  - Inappropriate schedule of drug administration [Unknown]
  - Eyelid ptosis [Unknown]
  - Eye pain [Unknown]

NARRATIVE: CASE EVENT DATE: 20140820
